FAERS Safety Report 11734412 (Version 8)
Quarter: 2017Q1

REPORT INFORMATION
  Report Type: Spontaneous
  Country: US (occurrence: US)
  Receive Date: 20151113
  Receipt Date: 20170213
  Transmission Date: 20170428
  Serious: Yes (Congenital Anomaly, Other)
  Sender: FDA-Public Use
  Company Number: PHEH2015US023211

PATIENT
  Sex: Male

DRUGS (3)
  1. ONDANSETRON HYDROCHLORIDE. [Suspect]
     Active Substance: ONDANSETRON HYDROCHLORIDE
     Indication: FOETAL EXPOSURE DURING PREGNANCY
     Route: 064
  2. ZOFRAN [Suspect]
     Active Substance: ONDANSETRON HYDROCHLORIDE
     Indication: FOETAL EXPOSURE DURING PREGNANCY
     Dosage: MOTHER DOSE: 8 MG, Q6H
     Route: 064
  3. ONDANSETRON HYDROCHLORIDE. [Suspect]
     Active Substance: ONDANSETRON HYDROCHLORIDE
     Indication: FOETAL EXPOSURE DURING PREGNANCY
     Dosage: MOTHER DOSE: 4 MG Q6H
     Route: 064

REACTIONS (21)
  - Foetal exposure during pregnancy [Unknown]
  - Left atrial dilatation [Unknown]
  - Selective eating disorder [Unknown]
  - Anxiety [Unknown]
  - Heart disease congenital [Unknown]
  - Left-to-right cardiac shunt [Unknown]
  - Mitral valve incompetence [Unknown]
  - Pain [Unknown]
  - Cardiac failure congestive [Unknown]
  - Limb asymmetry [Unknown]
  - Congenital anomaly [Unknown]
  - Deformity [Unknown]
  - Anhedonia [Unknown]
  - Injury [Unknown]
  - Emotional distress [Unknown]
  - Atrial septal defect [Unknown]
  - Cardiac murmur [Unknown]
  - Ventricular septal defect [Unknown]
  - Gait disturbance [Unknown]
  - Weight gain poor [Unknown]
  - Dermatitis diaper [Unknown]
